APPROVED DRUG PRODUCT: BACLOFEN
Active Ingredient: BACLOFEN
Strength: 5MG/5ML
Dosage Form/Route: SOLUTION;ORAL
Application: A214445 | Product #001
Applicant: RUBICON RESEARCH LTD
Approved: Dec 6, 2024 | RLD: No | RS: No | Type: RX